FAERS Safety Report 21907009 (Version 11)
Quarter: 2025Q2

REPORT INFORMATION
  Report Type: Spontaneous
  Country: JP (occurrence: JP)
  Receive Date: 20230125
  Receipt Date: 20250505
  Transmission Date: 20250717
  Serious: Yes (Other)
  Sender: SANOFI AVENTIS
  Company Number: JP-ASTELLAS-2022JP016076

PATIENT
  Age: 76 Year
  Sex: Male
  Weight: 61 kg

DRUGS (22)
  1. CALCIUM POLYCARBOPHIL [Interacting]
     Active Substance: CALCIUM POLYCARBOPHIL
     Indication: Irritable bowel syndrome
     Route: 048
     Dates: start: 2010
  2. ZOLPIDEM TARTRATE [Interacting]
     Active Substance: ZOLPIDEM TARTRATE
     Indication: Insomnia
     Route: 048
  3. ZOLPIDEM TARTRATE [Interacting]
     Active Substance: ZOLPIDEM TARTRATE
     Route: 048
  4. ZOLPIDEM TARTRATE [Interacting]
     Active Substance: ZOLPIDEM TARTRATE
     Route: 048
  5. ZOLPIDEM TARTRATE [Interacting]
     Active Substance: ZOLPIDEM TARTRATE
     Route: 048
  6. ZOLPIDEM TARTRATE [Interacting]
     Active Substance: ZOLPIDEM TARTRATE
     Route: 048
  7. TAMSULOSIN HYDROCHLORIDE [Suspect]
     Active Substance: TAMSULOSIN HYDROCHLORIDE
     Indication: Benign prostatic hyperplasia
     Route: 065
  8. TAMSULOSIN HYDROCHLORIDE [Suspect]
     Active Substance: TAMSULOSIN HYDROCHLORIDE
     Indication: Urinary retention
     Route: 048
  9. TAMSULOSIN HYDROCHLORIDE [Suspect]
     Active Substance: TAMSULOSIN HYDROCHLORIDE
     Dosage: 0.2 MG, Q12H
     Route: 048
  10. CHOLECALCIFEROL [Suspect]
     Active Substance: CHOLECALCIFEROL
     Indication: Irritable bowel syndrome
     Route: 048
  11. RAMOSETRON HYDROCHLORIDE [Interacting]
     Active Substance: RAMOSETRON HYDROCHLORIDE
     Indication: Irritable bowel syndrome
     Route: 048
     Dates: start: 2010, end: 202212
  12. RAMOSETRON HYDROCHLORIDE [Interacting]
     Active Substance: RAMOSETRON HYDROCHLORIDE
     Route: 048
  13. RAMOSETRON HYDROCHLORIDE [Interacting]
     Active Substance: RAMOSETRON HYDROCHLORIDE
     Route: 048
  14. TRIMEBUTINE [Concomitant]
     Active Substance: TRIMEBUTINE
     Indication: Product used for unknown indication
     Route: 048
  15. MIYA-BM [Concomitant]
     Active Substance: CLOSTRIDIUM BUTYRICUM SPORES STRAIN M-55
     Indication: Product used for unknown indication
     Route: 048
  16. GUAIAZULENE [Concomitant]
     Active Substance: GUAIAZULENE
     Indication: Product used for unknown indication
     Route: 065
  17. BELSOMRA [Concomitant]
     Active Substance: SUVOREXANT
     Indication: Product used for unknown indication
     Route: 048
  18. BELSOMRA [Concomitant]
     Active Substance: SUVOREXANT
     Route: 048
  19. CELECOXIB [Concomitant]
     Active Substance: CELECOXIB
     Indication: Product used for unknown indication
     Route: 048
  20. REBAMIPIDE [Concomitant]
     Active Substance: REBAMIPIDE
     Indication: Product used for unknown indication
     Route: 048
  21. NORVASC [Concomitant]
     Active Substance: AMLODIPINE BESYLATE
     Indication: Product used for unknown indication
     Route: 048
  22. LYRICA [Concomitant]
     Active Substance: PREGABALIN
     Indication: Product used for unknown indication
     Route: 048

REACTIONS (37)
  - Urinary retention [Unknown]
  - Large intestinal obstruction [Not Recovered/Not Resolved]
  - Drug dependence [Unknown]
  - Osteoporosis [Unknown]
  - Pollakiuria [Unknown]
  - Anal prolapse [Not Recovered/Not Resolved]
  - Hernia [Unknown]
  - Angiopathy [Unknown]
  - Impaired healing [Unknown]
  - Varicose vein [Unknown]
  - Middle insomnia [Unknown]
  - Polyuria [Unknown]
  - Irritability [Unknown]
  - Dizziness postural [Unknown]
  - Dizziness [Unknown]
  - Dysuria [Not Recovered/Not Resolved]
  - Headache [Unknown]
  - Hypoaesthesia [Unknown]
  - Diarrhoea [Unknown]
  - Dizziness [Recovered/Resolved]
  - Pruritus [Unknown]
  - Blood pressure increased [Unknown]
  - Drug eruption [Unknown]
  - Mental disorder [Unknown]
  - Sedation [Unknown]
  - Insomnia [Unknown]
  - Nocturia [Unknown]
  - Irritability [Unknown]
  - Initial insomnia [Unknown]
  - Dizziness [Unknown]
  - Fall [Unknown]
  - Pain [Unknown]
  - Sarcopenia [Unknown]
  - Meniscus injury [Unknown]
  - Product use issue [Unknown]
  - Therapeutic response increased [Unknown]
  - Product use complaint [Unknown]

NARRATIVE: CASE EVENT DATE: 20100101
